FAERS Safety Report 14495545 (Version 4)
Quarter: 2019Q2

REPORT INFORMATION
  Report Type: Spontaneous
  Country: US (occurrence: US)
  Receive Date: 20180206
  Receipt Date: 20190419
  Transmission Date: 20190711
  Serious: No
  Sender: FDA-Public Use
  Company Number: PHEH2018US004665

PATIENT
  Age: 67 Year
  Sex: Male

DRUGS (3)
  1. AFINITOR [Suspect]
     Active Substance: EVEROLIMUS
     Indication: RENAL CANCER
     Dosage: 5 MG, QD
     Route: 048
  2. LENVIMA [Suspect]
     Active Substance: LENVATINIB
     Indication: RENAL CANCER
     Dosage: 18 MG, QD
     Route: 048
  3. LENVIMA [Suspect]
     Active Substance: LENVATINIB
     Dosage: 14 MG QD
     Route: 048

REACTIONS (6)
  - Pain [Recovered/Resolved]
  - Diarrhoea [Unknown]
  - Epistaxis [Recovered/Resolved]
  - Cardiac disorder [Unknown]
  - Gingival bleeding [Unknown]
  - Nipple pain [Recovering/Resolving]

NARRATIVE: CASE EVENT DATE: 201711
